FAERS Safety Report 26212441 (Version 1)
Quarter: 2025Q4

REPORT INFORMATION
  Report Type: Report from Study
  Country: CA (occurrence: CA)
  Receive Date: 20251230
  Receipt Date: 20251230
  Transmission Date: 20260117
  Serious: Yes (Other)
  Sender: CELLTRION
  Company Number: CA-CELLTRION INC.-2024CA027295

PATIENT

DRUGS (9)
  1. ADALIMUMAB-AATY [Suspect]
     Active Substance: ADALIMUMAB-AATY
     Indication: Crohn^s disease
     Dosage: MAINTENANCE - 80 MG - SC (SUBCUTANEOUS) EVERY 7 DAYS
     Route: 058
     Dates: start: 20241031, end: 20250826
  2. ADALIMUMAB-AATY [Suspect]
     Active Substance: ADALIMUMAB-AATY
  3. INFLIXIMAB [Suspect]
     Active Substance: INFLIXIMAB
     Indication: Crohn^s disease
     Dosage: REMDANTRY - LOADING -900MG (10MG/KG ON 0, 2, 6 WEEKS.)
     Route: 042
     Dates: start: 20251110
  4. INFLIXIMAB [Suspect]
     Active Substance: INFLIXIMAB
     Dosage: 900 MG, WEEK 2 INFUSION
     Route: 042
     Dates: start: 20251125
  5. INFLIXIMAB [Suspect]
     Active Substance: INFLIXIMAB
     Dosage: REMDANTRY - LOADING - 10 MG/KG - IV (INTRAVENOUS) WEEK 0,2,6
     Route: 042
     Dates: start: 20251222
  6. RIFAMPIN [Concomitant]
     Active Substance: RIFAMPIN
     Indication: Hidradenitis
     Dosage: UNK
     Route: 065
     Dates: start: 202406
  7. CLINDAMYCIN [Concomitant]
     Active Substance: CLINDAMYCIN
     Indication: Hidradenitis
     Dosage: UNK
     Route: 065
     Dates: start: 202406
  8. SPIRONOLACTONE [Concomitant]
     Active Substance: SPIRONOLACTONE
     Indication: Hidradenitis
     Dosage: 1 YEAR AGO. CURRENT
     Route: 065
  9. METFORMIN [Concomitant]
     Active Substance: METFORMIN HYDROCHLORIDE
     Indication: Hidradenitis
     Dosage: STARTED 1 YEAR AGO. CURRENT.
     Route: 065

REACTIONS (5)
  - Neutropenia [Unknown]
  - Off label use [Not Recovered/Not Resolved]
  - Off label use [Unknown]
  - Incorrect dose administered [Unknown]
  - Inappropriate schedule of product administration [Unknown]

NARRATIVE: CASE EVENT DATE: 20241031
